FAERS Safety Report 20742068 (Version 1)
Quarter: 2022Q2

REPORT INFORMATION
  Report Type: Report from Study
  Country: IT (occurrence: IT)
  Receive Date: 20220423
  Receipt Date: 20220423
  Transmission Date: 20220721
  Serious: Yes (Other)
  Sender: FDA-Public Use
  Company Number: None

PATIENT
  Age: 73 Year
  Sex: Female
  Weight: 57 kg

DRUGS (3)
  1. METHOTREXATE (METHOTREXATE SODIUM) [Suspect]
     Active Substance: METHOTREXATE SODIUM
     Indication: Breast cancer
     Dosage: METOTRESSATO TEVA, FREQUENCY TIME : 1 CYCLICAL, UNIT DOSE: 35 MG, STRENGTH: 25 MG/ML
     Dates: start: 20211230
  2. FLUOROURACIL [Suspect]
     Active Substance: FLUOROURACIL
     Indication: Breast cancer
     Dosage: FLUOROURACILE TEVA 5 G/100 ML , FREQUENCY TIME : 1 CYCLICAL, UNIT DOSE: 600 MG
     Dates: start: 20211230
  3. CYCLOPHOSPHAMIDE [Suspect]
     Active Substance: CYCLOPHOSPHAMIDE
     Indication: Breast cancer
     Dosage: UNIT DOSE: 500 MG, FREQUENCY TIME : 1 CYCLICAL
     Dates: start: 20211230

REACTIONS (1)
  - Anaemia [Unknown]

NARRATIVE: CASE EVENT DATE: 20220329
